FAERS Safety Report 10025703 (Version 1)
Quarter: 2014Q1

REPORT INFORMATION
  Report Type: Spontaneous
  Country: IT (occurrence: None)
  Receive Date: 20140314
  Receipt Date: 20140314
  Transmission Date: 20141002
  Serious: Yes (Other)
  Sender: FDA-Public Use
  Company Number: B0975904A

PATIENT
  Sex: 0

DRUGS (2)
  1. MARAVIROC [Suspect]
     Indication: HIV INFECTION
  2. ANTIRETROVIRAL MEDICATIONS [Suspect]
     Indication: HIV INFECTION

REACTIONS (2)
  - Thrombotic thrombocytopenic purpura [None]
  - Immune thrombocytopenic purpura [None]
